FAERS Safety Report 9292704 (Version 1)
Quarter: 2013Q2

REPORT INFORMATION
  Report Type: Spontaneous
  Country: CN (occurrence: CN)
  Receive Date: 20130516
  Receipt Date: 20130516
  Transmission Date: 20140414
  Serious: Yes (Death)
  Sender: FDA-Public Use
  Company Number: CN-SANOFI-AVENTIS-2013SA047229

PATIENT
  Age: 55 Year
  Sex: Female

DRUGS (5)
  1. DOCETAXEL [Suspect]
     Indication: BREAST CANCER METASTATIC
     Route: 041
     Dates: start: 20130416
  2. HERCEPTIN [Suspect]
     Indication: BREAST CANCER METASTATIC
     Route: 041
     Dates: start: 20130416
  3. PAMIDRONATE DISODIUM [Concomitant]
     Indication: METASTASES TO BONE
     Route: 041
     Dates: start: 20130416
  4. CARBOPLATIN [Concomitant]
     Route: 041
  5. SALINE [Concomitant]

REACTIONS (1)
  - Myocardial infarction [Fatal]
